FAERS Safety Report 7774044-6 (Version None)
Quarter: 2011Q3

REPORT INFORMATION
  Report Type: 
  Country: None (occurrence: None)
  Receive Date: 20110923
  Receipt Date: 20110918
  Transmission Date: 20111222
  Serious: No
  Sender: FDA-Public Use
  Company Number: US-PFIZER INC-2011223854

PATIENT
  Sex: Female

DRUGS (1)
  1. DETROL LA [Suspect]

REACTIONS (1)
  - ABDOMINAL PAIN UPPER [None]
